FAERS Safety Report 9283080 (Version 1)
Quarter: 2013Q2

REPORT INFORMATION
  Report Type: Spontaneous
  Country: US (occurrence: US)
  Receive Date: 20130510
  Receipt Date: 20130510
  Transmission Date: 20140414
  Serious: No
  Sender: FDA-Public Use
  Company Number: US-GLAXOSMITHKLINE-A0979044A

PATIENT
  Age: 45 Year
  Sex: Female
  Weight: 88.6 kg

DRUGS (11)
  1. TYKERB [Suspect]
     Indication: PRODUCT USED FOR UNKNOWN INDICATION
     Dosage: 250MG PER DAY
     Route: 048
     Dates: start: 20120222, end: 20120328
  2. MORPHINE SULFATE [Concomitant]
  3. HYDROCODONE + ACETAMINOPHEN [Concomitant]
  4. SYNTHROID [Concomitant]
  5. CELEXA [Concomitant]
  6. ZOLADEX [Concomitant]
  7. HERCEPTIN [Concomitant]
  8. VITAMIN D [Concomitant]
  9. MULTIVITAMINS [Concomitant]
  10. PANTOPRAZOLE SODIUM [Concomitant]
  11. ZOMETA [Concomitant]

REACTIONS (1)
  - Malaise [Recovered/Resolved]
